FAERS Safety Report 7803887-5 (Version None)
Quarter: 2011Q4

REPORT INFORMATION
  Report Type: 
  Country: None (occurrence: None)
  Receive Date: 20111010
  Receipt Date: 20111007
  Transmission Date: 20120403
  Serious: Yes (Other)
  Sender: FDA-Public Use
  Company Number: US-PFIZER INC-2011234270

PATIENT
  Sex: Female
  Weight: 58.957 kg

DRUGS (5)
  1. NEURONTIN [Suspect]
  2. NEURONTIN [Suspect]
     Indication: BACK PAIN
     Dosage: 300 MG, 3X/DAY
     Route: 048
     Dates: start: 20110913, end: 20110930
  3. NEURONTIN [Suspect]
     Indication: NEURALGIA
     Dosage: 100 MG, 3X/DAY
     Route: 048
     Dates: start: 20110801, end: 20110912
  4. ELMIRON [Concomitant]
     Indication: CYSTITIS INTERSTITIAL
     Dosage: 100 MG, 3X/DAY
     Dates: start: 19960101
  5. URISED [Concomitant]
     Indication: BLADDER PAIN
     Dosage: UNK

REACTIONS (2)
  - CYSTITIS INTERSTITIAL [None]
  - BLADDER PAIN [None]
